FAERS Safety Report 23323740 (Version 1)
Quarter: 2023Q4

REPORT INFORMATION
  Report Type: Spontaneous
  Country: US (occurrence: None)
  Receive Date: 20231220
  Receipt Date: 20231220
  Transmission Date: 20240110
  Serious: No
  Sender: FDA-Public Use
  Company Number: US-ROCHE-3455425

PATIENT
  Sex: Male
  Weight: 129.84 kg

DRUGS (1)
  1. RITUXAN [Suspect]
     Active Substance: RITUXIMAB
     Indication: Stiff person syndrome
     Dosage: 2 INFUSIONS 14 DAYS APART WITH A 6 MONTH SEPARATION?LAST DOSE OF RITUXAN WAS 28/JUL/2023
     Route: 042
     Dates: start: 202301

REACTIONS (3)
  - Off label use [Unknown]
  - Upper respiratory tract infection [Unknown]
  - Eye infection [Unknown]
